FAERS Safety Report 8299281-6 (Version None)
Quarter: 2012Q2

REPORT INFORMATION
  Report Type: 
  Country: None (occurrence: None)
  Receive Date: 20120419
  Receipt Date: 20120413
  Transmission Date: 20120825
  Serious: Yes (Other)
  Sender: FDA-Public Use
  Company Number: US-PFIZER INC-2012093552

PATIENT
  Sex: Male

DRUGS (6)
  1. DUONEB [Concomitant]
     Dosage: 2.5-0.5 MG/3ML, AS DIRECTED
  2. LIPITOR [Suspect]
     Dosage: 10 MG, 1 TABLET BY MOUTH EVERY DAY
     Route: 048
  3. ADVAIR DISKUS 100/50 [Concomitant]
     Dosage: 250-50 MCG/DOSE MISC, 1 INHALATION  TWICE A DAY
  4. ALBUTEROL SULFATE [Concomitant]
     Dosage: 108 (90 BASE) MCG/ACT, ONE TO TWO PUFFS EVERY 4 HOURS AS NEEDED
  5. CALCIUM CARBONATE [Concomitant]
     Dosage: 1250 MG, DAILY
  6. SINGULAIR [Concomitant]
     Dosage: 10 MG, 1 TABLET BY MOUTH EVERY DAY

REACTIONS (3)
  - HYPERCHOLESTEROLAEMIA [None]
  - BRONCHITIS [None]
  - ASTHMA [None]
